FAERS Safety Report 8947616 (Version 1)
Quarter: 2012Q4

REPORT INFORMATION
  Report Type: 
  Country: US (occurrence: US)
  Receive Date: 20121204
  Receipt Date: 20121204
  Transmission Date: 20130627
  Serious: No
  Sender: FDA-Public Use
  Company Number: US-ABBOTT-12P-163-0892540-00

PATIENT
  Sex: Male

DRUGS (1)
  1. OMNICEF [Suspect]
     Indication: EAR INFECTION
     Dosage: 250/5, 4 ml daily
     Dates: start: 20111229, end: 20120109

REACTIONS (1)
  - Rash generalised [Not Recovered/Not Resolved]
